FAERS Safety Report 20105213 (Version 1)
Quarter: 2021Q4

REPORT INFORMATION
  Report Type: Spontaneous
  Country: CN (occurrence: CN)
  Receive Date: 20211124
  Receipt Date: 20211124
  Transmission Date: 20220304
  Serious: Yes (Hospitalization, Other)
  Sender: FDA-Public Use
  Company Number: CN-SA-SAC20211119000900

PATIENT
  Age: 69 Year
  Sex: Male
  Weight: 63 kg

DRUGS (2)
  1. PLAVIX [Suspect]
     Active Substance: CLOPIDOGREL BISULFATE
     Indication: Arterial thrombosis
     Dosage: 75 MG, QD
     Route: 048
     Dates: start: 20210704, end: 20210908
  2. ASPIRIN [Suspect]
     Active Substance: ASPIRIN
     Indication: Arterial thrombosis
     Dosage: 100 MG, QD
     Route: 048
     Dates: start: 20210704, end: 20210908

REACTIONS (3)
  - Cold sweat [Not Recovered/Not Resolved]
  - Haematochezia [Not Recovered/Not Resolved]
  - Dizziness [Not Recovered/Not Resolved]

NARRATIVE: CASE EVENT DATE: 20210907
